FAERS Safety Report 9420673 (Version 2)
Quarter: 2013Q4

REPORT INFORMATION
  Report Type: Report from Study
  Country: BE (occurrence: BE)
  Receive Date: 20130725
  Receipt Date: 20131129
  Transmission Date: 20140711
  Serious: Yes (Other)
  Sender: FDA-Public Use
  Company Number: PHHY2013BE023996

PATIENT
  Age: 33 Year
  Sex: Female

DRUGS (9)
  1. FTY 720 [Suspect]
     Indication: MULTIPLE SCLEROSIS
     Dosage: 0.5 MG, QD
     Route: 048
     Dates: start: 2010, end: 20120810
  2. FTY 720 [Suspect]
     Dosage: 0.5 MG, QD
     Route: 048
     Dates: start: 20121115, end: 20130221
  3. PANTOMED//PANTOPRAZOLE SODIUM SESQUIHYDRATE [Concomitant]
     Dosage: 20 UKN, QD
     Dates: start: 20121203
  4. ELTHYRONE [Concomitant]
     Dosage: 100 UKN, QD
     Dates: start: 1995
  5. CYMBALTA [Concomitant]
     Dosage: 60 UKN, QD
  6. ABILIFY [Concomitant]
     Dosage: 10 UKN, QD
  7. RIVOTRIL [Concomitant]
     Dosage: 10 GTT, IN EVENING
     Dates: start: 20121211
  8. MELIANE [Concomitant]
     Dosage: UNK UKN, QD
     Dates: start: 2007
  9. HUMALOG [Concomitant]
     Dosage: UNK UKN, UNK
     Dates: start: 2007

REACTIONS (4)
  - Convulsion [Recovered/Resolved]
  - Loss of consciousness [Recovered/Resolved]
  - Hypotension [Not Recovered/Not Resolved]
  - Malaise [Recovering/Resolving]
